FAERS Safety Report 7860841-5 (Version None)
Quarter: 2011Q4

REPORT INFORMATION
  Report Type: 
  Country: None (occurrence: None)
  Receive Date: 20111027
  Receipt Date: 20111021
  Transmission Date: 20120403
  Serious: Yes (Death)
  Sender: FDA-Public Use
  Company Number: US-GILEAD-2011-0045347

PATIENT

DRUGS (2)
  1. LETAIRIS [Suspect]
     Indication: CORONARY ARTERY DISEASE
  2. LETAIRIS [Suspect]
     Indication: PULMONARY HYPERTENSION
     Dosage: 10 MG, UNK
     Route: 048
     Dates: start: 20110718, end: 20111006

REACTIONS (1)
  - DISEASE COMPLICATION [None]
